FAERS Safety Report 20037085 (Version 1)
Quarter: 2021Q4

REPORT INFORMATION
  Report Type: Spontaneous
  Country: CA (occurrence: CA)
  Receive Date: 20211105
  Receipt Date: 20211105
  Transmission Date: 20220304
  Serious: Yes (Death)
  Sender: FDA-Public Use
  Company Number: CA-TEVA-2021-CA-1971829

PATIENT
  Age: 42 Year
  Sex: Male

DRUGS (1)
  1. NAPROXEN [Suspect]
     Active Substance: NAPROXEN
     Indication: Musculoskeletal disorder
     Dosage: 1000 MILLIGRAM DAILY;
     Route: 065

REACTIONS (2)
  - Melaena [Fatal]
  - Upper gastrointestinal haemorrhage [Fatal]
